FAERS Safety Report 5827676-6 (Version None)
Quarter: 2008Q3

REPORT INFORMATION
  Report Type: 
  Country: None (occurrence: None)
  Receive Date: 20080728
  Receipt Date: 20080714
  Transmission Date: 20090109
  Serious: Yes (Other)
  Sender: FDA-Public Use
  Company Number: 230051M08CAN

PATIENT
  Age: 49 Year
  Sex: Female

DRUGS (7)
  1. REBIF [Suspect]
     Indication: RELAPSING-REMITTING MULTIPLE SCLEROSIS
     Dosage: 44 MCG, 3 IN 1 WEEKS, SUBCUTANEOUS,  22 MCG, SUBCUTANEOUS
     Route: 058
     Dates: start: 20020101, end: 20030101
  2. REBIF [Suspect]
     Indication: RELAPSING-REMITTING MULTIPLE SCLEROSIS
     Dosage: 44 MCG, 3 IN 1 WEEKS, SUBCUTANEOUS,  22 MCG, SUBCUTANEOUS
     Route: 058
     Dates: start: 20080101, end: 20080101
  3. REBIF [Suspect]
     Indication: RELAPSING-REMITTING MULTIPLE SCLEROSIS
     Dosage: 44 MCG, 3 IN 1 WEEKS, SUBCUTANEOUS,  22 MCG, SUBCUTANEOUS
     Route: 058
     Dates: end: 20080401
  4. REBIF [Suspect]
     Indication: RELAPSING-REMITTING MULTIPLE SCLEROSIS
     Dosage: 44 MCG, 3 IN 1 WEEKS, SUBCUTANEOUS,  22 MCG, SUBCUTANEOUS
     Route: 058
     Dates: start: 20030101
  5. METFORMIN /00082701/ [Concomitant]
  6. ENERGIX [Concomitant]
  7. LANSOPRAZOLE [Concomitant]

REACTIONS (1)
  - STEVENS-JOHNSON SYNDROME [None]
